FAERS Safety Report 6061630-7 (Version None)
Quarter: 2009Q1

REPORT INFORMATION
  Report Type: 
  Country: None (occurrence: None)
  Receive Date: 20090202
  Receipt Date: 20090127
  Transmission Date: 20090719
  Serious: Yes (Hospitalization)
  Sender: FDA-Public Use
  Company Number: A0765301A

PATIENT
  Age: 54 Year
  Sex: Female

DRUGS (4)
  1. ADVAIR DISKUS 100/50 [Suspect]
     Indication: CHRONIC OBSTRUCTIVE PULMONARY DISEASE
     Dosage: 1PUFF TWICE PER DAY
     Route: 055
     Dates: start: 20050101, end: 20080101
  2. LEVOXYL [Concomitant]
  3. FLOVENT [Concomitant]
  4. DILTIAZEM [Concomitant]

REACTIONS (1)
  - HEART RATE INCREASED [None]
